FAERS Safety Report 9855756 (Version 3)
Quarter: 2014Q2

REPORT INFORMATION
  Report Type: Spontaneous
  Country: US (occurrence: US)
  Receive Date: 20140130
  Receipt Date: 20140410
  Transmission Date: 20141212
  Serious: Yes (Life-Threatening, Other)
  Sender: FDA-Public Use
  Company Number: PHEH2014US001721

PATIENT
  Age: 37 Year
  Sex: Female
  Weight: 47 kg

DRUGS (10)
  1. CLOZARIL [Suspect]
     Indication: BIPOLAR DISORDER
     Dosage: UNK
  2. CLOZARIL [Suspect]
     Indication: SUICIDAL BEHAVIOUR
  3. DOMPERIDONE [Suspect]
     Indication: GASTROINTESTINAL MOTILITY DISORDER
     Dosage: 10 MG, (15-30 MINS FOR 6 DAYS)
     Route: 048
     Dates: start: 20131213, end: 20131218
  4. DOMPERIDONE [Suspect]
     Indication: MALNUTRITION
  5. CLOZAPINE [Suspect]
     Indication: BIPOLAR DISORDER
     Dosage: 125 MG, DAILY (50 MG MORNING, 75 MG NIGHT)
     Route: 048
     Dates: start: 2009
  6. CLOZAPINE [Suspect]
     Indication: SUICIDAL BEHAVIOUR
  7. ALPRAZOLAM [Concomitant]
     Indication: ANXIETY DISORDER
     Dosage: 1 MG, BID
     Route: 048
     Dates: start: 2013
  8. GABAPENTIN [Concomitant]
     Dosage: 500 MG, BID
     Route: 048
     Dates: start: 201212
  9. IBUPROFEN [Concomitant]
     Dosage: 400 MG, BID
     Route: 048
     Dates: start: 201212
  10. LANSOPRAZOLE [Concomitant]
     Indication: GASTROOESOPHAGEAL REFLUX DISEASE
     Dosage: 30 MG, BID

REACTIONS (26)
  - Toxic epidermal necrolysis [Recovered/Resolved]
  - Erythema [Unknown]
  - Rash [Unknown]
  - Oral disorder [Unknown]
  - Skin exfoliation [Unknown]
  - Skin lesion [Unknown]
  - Pharyngeal lesion [Unknown]
  - Stevens-Johnson syndrome [Recovered/Resolved]
  - Angioedema [Recovered/Resolved]
  - Herpes simplex [Unknown]
  - Haematological malignancy [Unknown]
  - Osteoporosis [Unknown]
  - Ovarian failure [Unknown]
  - Faecaloma [Unknown]
  - Constipation [Unknown]
  - Gastrointestinal motility disorder [Unknown]
  - Impaired gastric emptying [Unknown]
  - Malnutrition [Unknown]
  - Cough [Unknown]
  - Lethargy [Unknown]
  - Chest discomfort [Unknown]
  - Malaise [Unknown]
  - Arthralgia [Unknown]
  - Fatigue [Unknown]
  - Salivary hypersecretion [Unknown]
  - Somnolence [Unknown]
